FAERS Safety Report 13137395 (Version 2)
Quarter: 2017Q2

REPORT INFORMATION
  Report Type: Report from Study
  Country: US (occurrence: US)
  Receive Date: 20170123
  Receipt Date: 20170412
  Transmission Date: 20170830
  Serious: Yes (Hospitalization, Other)
  Sender: FDA-Public Use
  Company Number: US-AMGEN-USASL2017008965

PATIENT
  Age: 59 Year
  Sex: Male

DRUGS (1)
  1. KYPROLIS [Suspect]
     Active Substance: CARFILZOMIB
     Indication: PLASMA CELL MYELOMA
     Dosage: UNK
     Route: 065

REACTIONS (12)
  - Clostridium difficile infection [Recovering/Resolving]
  - Muscle spasms [Unknown]
  - Decreased appetite [Recovering/Resolving]
  - Bedridden [Unknown]
  - Bladder spasm [Unknown]
  - Asthenia [Not Recovered/Not Resolved]
  - Anaemia [Recovering/Resolving]
  - Weight decreased [Recovering/Resolving]
  - Hospitalisation [Unknown]
  - Spinal cord injury [Unknown]
  - Decubitus ulcer [Recovering/Resolving]
  - Protein total decreased [Recovering/Resolving]
